FAERS Safety Report 20449649 (Version 2)
Quarter: 2022Q1

REPORT INFORMATION
  Report Type: Report from Study
  Country: US (occurrence: US)
  Receive Date: 20220209
  Receipt Date: 20220302
  Transmission Date: 20220423
  Serious: Yes (Hospitalization)
  Sender: FDA-Public Use
  Company Number: US-PFIZER INC-202200158136

PATIENT
  Age: 31 Year
  Sex: Female
  Weight: 59.3 kg

DRUGS (21)
  1. INOTUZUMAB OZOGAMICIN [Suspect]
     Active Substance: INOTUZUMAB OZOGAMICIN
     Indication: Chronic myeloid leukaemia
     Dosage: ON DAYS 8 AND 15 OF EVERY 28-DAY CYCLE
     Dates: start: 20211220, end: 20220128
  2. VINCRISTINE SULFATE [Suspect]
     Active Substance: VINCRISTINE SULFATE
     Indication: Chronic myeloid leukaemia
     Dosage: 0.4 MG/M2/DAY CIV DAYS 1-4 Q28 DAYS
     Dates: start: 20220114, end: 20220117
  3. DOXORUBICIN HYDROCHLORIDE [Suspect]
     Active Substance: DOXORUBICIN HYDROCHLORIDE
     Indication: Chronic myeloid leukaemia
     Dosage: 12 MG/M2/DAY CIV DAYS 1-4 Q28 DAYS
     Dates: start: 20220114, end: 20220117
  4. ETOPOSIDE [Suspect]
     Active Substance: ETOPOSIDE
     Indication: Chronic myeloid leukaemia
     Dosage: 60 MG/M2/DAY CIV DAYS 1-4 Q28 DAYS
     Dates: start: 20220114, end: 20220117
  5. CYCLOPHOSPHAMIDE [Suspect]
     Active Substance: CYCLOPHOSPHAMIDE
     Indication: Chronic myeloid leukaemia
     Dosage: 900 MG/M2, DAY 5 Q28 DAYS
     Route: 042
     Dates: start: 20220118, end: 20220118
  6. VITAMIN D3 [Concomitant]
     Active Substance: CHOLECALCIFEROL
     Dosage: 1000 UNITS, DAILY
     Route: 048
  7. ESTRACE [Concomitant]
     Active Substance: ESTRADIOL
     Dosage: 1 MG, DAILY
     Route: 048
  8. FAMOTIDINE [Concomitant]
     Active Substance: FAMOTIDINE
     Dosage: 1 TABLET, 2 TIMES A DAY FOR 5 DAYS
     Route: 048
  9. LANOLIN [Concomitant]
     Active Substance: LANOLIN
     Dosage: EVERY 3 HOURS PRN
     Route: 061
  10. LIDOCAINE VISCOUS [Concomitant]
     Active Substance: LIDOCAINE HYDROCHLORIDE
     Dosage: 5 ML, MOUTH/THROAT, 4 TIMES DAILY PRN
  11. PROVERA [Concomitant]
     Active Substance: MEDROXYPROGESTERONE ACETATE
     Dosage: 2.5 MG, DAILY
     Route: 048
  12. OMEGA-3 FATTY ACIDS [Concomitant]
     Active Substance: OMEGA-3 FATTY ACIDS
     Dosage: 1000 MG, DAILY
     Route: 048
  13. ZOFRAN [Concomitant]
     Active Substance: ONDANSETRON HYDROCHLORIDE
     Dosage: 8 MG, EVERY 8 HOURS PRN
     Route: 048
  14. OXYCODONE [Concomitant]
     Active Substance: OXYCODONE
     Dosage: 5 MG, EVERY 6 HOURS PRN
     Route: 048
  15. PREDNISONE [Concomitant]
     Active Substance: PREDNISONE
     Dosage: 9.5 TABLETS, 2 TIMES A DAY WITH FOOD FOR 5 DAYS
     Route: 048
  16. COMPAZINE [Concomitant]
     Active Substance: PROCHLORPERAZINE MALEATE
     Dosage: 10 MG, EVERY 6 HOURS PRN
     Route: 048
  17. SENOKOT [Concomitant]
     Active Substance: SENNOSIDES
     Dosage: 17.2 MG, 2 TIMES DAILY
     Route: 048
  18. SODIUM FLUORIDE [Concomitant]
     Active Substance: SODIUM FLUORIDE
     Dosage: 1 APPLICATION, DAILY
     Route: 004
  19. SULFAMETHOXAZOLE\TRIMETHOPRIM [Concomitant]
     Active Substance: SULFAMETHOXAZOLE\TRIMETHOPRIM
     Dosage: 1 TABLET, 2 TIMES DAILY ON MON AND TUES
     Route: 048
  20. URSODIOL [Concomitant]
     Active Substance: URSODIOL
     Dosage: 250 MG, 2 TIMES DAILY, TAKE WITH FOOD
     Route: 048
  21. VALACYCLOVIR HYDROCHLORIDE [Concomitant]
     Active Substance: VALACYCLOVIR HYDROCHLORIDE
     Dosage: 1 G
     Route: 048

REACTIONS (2)
  - Mucosal inflammation [Recovered/Resolved]
  - Febrile neutropenia [Recovered/Resolved]

NARRATIVE: CASE EVENT DATE: 20220125
